FAERS Safety Report 5103239-5 (Version None)
Quarter: 2006Q3

REPORT INFORMATION
  Report Type: 
  Country: None (occurrence: None)
  Receive Date: 20060908
  Receipt Date: 20060825
  Transmission Date: 20061208
  Serious: Yes (Hospitalization)
  Sender: FDA-Public Use
  Company Number: 2006RL000314

PATIENT
  Age: 83 Year
  Sex: Male

DRUGS (2)
  1. RYTHMOL [Suspect]
     Indication: DRUG USE FOR UNKNOWN INDICATION
     Dates: end: 20060821
  2. CLORAZEPAM                (SIC) [Concomitant]

REACTIONS (2)
  - INTENTIONAL OVERDOSE [None]
  - LIFE SUPPORT [None]
